FAERS Safety Report 8803559 (Version 1)
Quarter: 2012Q4

REPORT INFORMATION
  Report Type: 
  Country: US (occurrence: US)
  Receive Date: 20120924
  Receipt Date: 20120924
  Transmission Date: 20130627
  Serious: No
  Sender: FDA-Public Use
  Company Number: US-B.I. PHARMACEUTICALS,INC./RIDGEFIELD-2012-BP-22953BP

PATIENT
  Age: 88 Year
  Sex: Male
  Weight: 69 kg

DRUGS (5)
  1. PRADAXA [Suspect]
     Indication: ATRIAL FIBRILLATION
     Dosage: 150 mg
     Route: 048
     Dates: start: 20120829, end: 20120912
  2. AMIODARONE [Concomitant]
     Dosage: 100 mg
     Route: 048
     Dates: start: 20120704
  3. PRAVASTATIN [Concomitant]
     Indication: BLOOD CHOLESTEROL INCREASED
     Dosage: 40 mg
     Route: 048
     Dates: start: 2010
  4. METOPROLOL [Concomitant]
     Indication: CARDIAC DISORDER
     Dosage: 12.5 mg
     Route: 048
     Dates: start: 20120704
  5. LISINOPRIL/HCTZ [Concomitant]
     Indication: HYPERTENSION
     Route: 048
     Dates: start: 2010

REACTIONS (3)
  - Urticaria [Not Recovered/Not Resolved]
  - Abdominal pain lower [Recovered/Resolved]
  - Renal pain [Recovered/Resolved]
